FAERS Safety Report 7157199-6 (Version None)
Quarter: 2010Q4

REPORT INFORMATION
  Report Type: 
  Country: None (occurrence: None)
  Receive Date: 20101214
  Receipt Date: 20100112
  Transmission Date: 20110411
  Serious: No
  Sender: FDA-Public Use
  Company Number: US-ASTRAZENECA-2009SE31056

PATIENT
  Age: 82 Year
  Sex: Male

DRUGS (4)
  1. CRESTOR [Suspect]
     Indication: HYPERCHOLESTEROLAEMIA
     Route: 048
     Dates: start: 20070815, end: 20091015
  2. TAMAZOPAN [Concomitant]
  3. DIAZIDE [Concomitant]
  4. LEVITRA [Concomitant]

REACTIONS (1)
  - GYNAECOMASTIA [None]
